FAERS Safety Report 10143999 (Version 1)
Quarter: 2014Q2

REPORT INFORMATION
  Report Type: Spontaneous
  Country: US (occurrence: US)
  Receive Date: 20140430
  Receipt Date: 20140430
  Transmission Date: 20141212
  Serious: Yes (Hospitalization)
  Sender: FDA-Public Use
  Company Number: US-BRISTOL-MYERS SQUIBB COMPANY-20665527

PATIENT
  Age: 65 Year
  Sex: Female
  Weight: 59 kg

DRUGS (2)
  1. YERVOY [Suspect]
     Indication: OVARIAN CANCER
     Dosage: TOTAL DOSE: 592MG
  2. LEXAPRO [Concomitant]

REACTIONS (2)
  - Pituitary tumour [Unknown]
  - Off label use [Unknown]
